FAERS Safety Report 7676379-4 (Version None)
Quarter: 2011Q3

REPORT INFORMATION
  Report Type: 
  Country: None (occurrence: None)
  Receive Date: 20110811
  Receipt Date: 20110809
  Transmission Date: 20111222
  Serious: No
  Sender: FDA-Public Use
  Company Number: US-PFIZER INC-2011183653

PATIENT
  Sex: Female
  Weight: 22.676 kg

DRUGS (1)
  1. CHILDREN'S ADVIL [Suspect]
     Indication: PYREXIA
     Dosage: TWO TABLESPOONS
     Route: 048

REACTIONS (1)
  - LIP SWELLING [None]
